FAERS Safety Report 20698091 (Version 2)
Quarter: 2025Q2

REPORT INFORMATION
  Report Type: Spontaneous
  Country: US (occurrence: US)
  Receive Date: 20220412
  Receipt Date: 20250609
  Transmission Date: 20250716
  Serious: Yes (Other)
  Sender: AUROBINDO
  Company Number: US-MLMSERVICE-20220321-3445129-1

PATIENT
  Age: 24 Year
  Sex: Female

DRUGS (1)
  1. VANCOMYCIN [Suspect]
     Active Substance: VANCOMYCIN
     Indication: Device related infection
     Route: 042

REACTIONS (4)
  - Type I hypersensitivity [Recovered/Resolved]
  - Anaphylactic reaction [Unknown]
  - Spinal stroke [Unknown]
  - Paraplegia [Unknown]
